FAERS Safety Report 4733846-0 (Version None)
Quarter: 2005Q3

REPORT INFORMATION
  Report Type: 
  Country: None (occurrence: None)
  Receive Date: 20050803
  Receipt Date: 20050505
  Transmission Date: 20060218
  Serious: Yes (Other)
  Sender: FDA-Public Use
  Company Number: US-MERCK-0505USA00764

PATIENT
  Sex: Female
  Weight: 77 kg

DRUGS (5)
  1. VIOXX [Suspect]
     Indication: ARTHRITIS
     Route: 048
     Dates: start: 20010614, end: 20040915
  2. PROPRANOLOL HYDROCHLORIDE [Concomitant]
     Route: 065
     Dates: start: 19830101
  3. ASPIRIN [Concomitant]
     Route: 048
     Dates: start: 19860101, end: 20050101
  4. PREMARIN [Concomitant]
     Route: 065
     Dates: start: 19650101, end: 20040201
  5. LOTREL [Concomitant]
     Route: 065
     Dates: start: 19990101

REACTIONS (5)
  - BLOOD CHOLESTEROL INCREASED [None]
  - COAGULOPATHY [None]
  - GASTRIC DISORDER [None]
  - HYPERTENSION [None]
  - PULMONARY EMBOLISM [None]
